FAERS Safety Report 25796172 (Version 1)
Quarter: 2025Q3

REPORT INFORMATION
  Report Type: Spontaneous
  Country: US (occurrence: None)
  Receive Date: 20250911
  Receipt Date: 20250911
  Transmission Date: 20251021
  Serious: Yes (Other)
  Sender: FDA-CTU
  Company Number: None

PATIENT
  Age: 41 Year
  Sex: Female

DRUGS (3)
  1. CYANOCOBALAMIN\NALTREXONE\TOPIRAMATE [Suspect]
     Active Substance: CYANOCOBALAMIN\NALTREXONE\TOPIRAMATE
     Indication: Weight decreased
     Dosage: FREQUENCY : DAILY;?
     Route: 048
     Dates: start: 20250702, end: 20250725
  2. BUPROPION [Suspect]
     Active Substance: BUPROPION
     Dates: start: 20250702, end: 20250725
  3. METFORMIN [Suspect]
     Active Substance: METFORMIN HYDROCHLORIDE

REACTIONS (5)
  - Nausea [None]
  - Taste disorder [None]
  - Therapy interrupted [None]
  - Chest discomfort [None]
  - Vomiting [None]

NARRATIVE: CASE EVENT DATE: 20250725
